FAERS Safety Report 4373223-8 (Version None)
Quarter: 2004Q2

REPORT INFORMATION
  Report Type: 
  Country: None (occurrence: None)
  Receive Date: 20040608
  Receipt Date: 20040504
  Transmission Date: 20050107
  Serious: Yes (Death, Life-Threatening, Other)
  Sender: FDA-Public Use
  Company Number: US-GLAXOSMITHKLINE-A0509647A

PATIENT
  Age: 57 Year
  Sex: Male
  Weight: 95.5 kg

DRUGS (4)
  1. ADVAIR DISKUS 100/50 [Suspect]
     Dosage: 1PUFF TWICE PER DAY
     Route: 055
     Dates: start: 20040429, end: 20040501
  2. ZITHROMAX [Concomitant]
     Route: 048
     Dates: start: 20040429, end: 20040501
  3. METOPROLOL TARTRATE [Concomitant]
     Dosage: 50MG PER DAY
     Route: 048
  4. TUSSIONEX [Concomitant]
     Dosage: 5CC AT NIGHT
     Route: 048
     Dates: start: 20040429, end: 20040501

REACTIONS (1)
  - DEATH [None]
